FAERS Safety Report 5007827-6 (Version None)
Quarter: 2006Q2

REPORT INFORMATION
  Report Type: 
  Country: None (occurrence: None)
  Receive Date: 20060522
  Receipt Date: 20060515
  Transmission Date: 20061013
  Serious: Yes (Hospitalization)
  Sender: FDA-Public Use
  Company Number: JP-JNJFOC-20051204929

PATIENT
  Age: 61 Year
  Sex: Female

DRUGS (8)
  1. GASTER 10 [Suspect]
     Indication: GASTRITIS
     Route: 048
  2. GASTER 10 [Suspect]
     Route: 048
  3. GASTER 10 [Suspect]
     Indication: DRUG USE FOR UNKNOWN INDICATION
     Route: 048
  4. BUSCOPAN [Concomitant]
     Route: 048
  5. LAC-B [Concomitant]
     Route: 048
  6. SELBEX [Concomitant]
     Route: 048
  7. SELBEX [Concomitant]
     Indication: VOMITING
     Route: 048
  8. OTC COLD MEDICATION [Concomitant]

REACTIONS (3)
  - DUODENITIS [None]
  - HEPATITIS ACUTE [None]
  - LIVER DISORDER [None]
